FAERS Safety Report 24068402 (Version 3)
Quarter: 2024Q3

REPORT INFORMATION
  Report Type: Report from Study
  Country: JP (occurrence: JP)
  Receive Date: 20240710
  Receipt Date: 20240710
  Transmission Date: 20241017
  Serious: No
  Sender: ROCHE
  Company Number: JP-CHUGAI-2022010041

PATIENT
  Age: 6 Year
  Sex: Male
  Weight: 42.0 kg

DRUGS (2)
  1. ROZLYTREK [Suspect]
     Active Substance: ENTRECTINIB
     Indication: Neoplasm malignant
     Route: 048
     Dates: start: 20200720, end: 20200803
  2. ROZLYTREK [Suspect]
     Active Substance: ENTRECTINIB
     Route: 048
     Dates: start: 20210804

REACTIONS (1)
  - Obesity [Not Recovered/Not Resolved]
